FAERS Safety Report 8550768-8 (Version None)
Quarter: 2012Q3

REPORT INFORMATION
  Report Type: 
  Country: None (occurrence: None)
  Receive Date: 20120730
  Receipt Date: 20120409
  Transmission Date: 20120928
  Serious: No
  Sender: FDA-Public Use
  Company Number: US-ALLERGAN-1109215US

PATIENT
  Age: 59 Year
  Sex: Female

DRUGS (3)
  1. LATISSE [Suspect]
     Indication: GROWTH OF EYELASHES
     Dosage: 2 GTT, QHS
     Route: 061
     Dates: start: 20100301, end: 20100901
  2. LATISSE [Suspect]
     Dosage: 2 GTT, QHS
     Route: 047
  3. LATISSE [Suspect]

REACTIONS (3)
  - WRONG TECHNIQUE IN DRUG USAGE PROCESS [None]
  - TRICHORRHEXIS [None]
  - DRUG INEFFECTIVE [None]
